FAERS Safety Report 15800424 (Version 1)
Quarter: 2019Q1

REPORT INFORMATION
  Report Type: Spontaneous
  Country: US (occurrence: US)
  Receive Date: 20190108
  Receipt Date: 20190108
  Transmission Date: 20190417
  Serious: No
  Sender: FDA-Public Use
  Company Number: US-UPSHER-SMITH LABORATORIES, LLC-2018USL00469

PATIENT
  Age: 8 Month
  Sex: Male
  Weight: 9.98 kg

DRUGS (8)
  1. VIGADRONE [Suspect]
     Active Substance: VIGABATRIN
     Dosage: 500 MG, 2X/DAY
     Route: 048
     Dates: start: 201809, end: 201809
  2. VIGADRONE [Suspect]
     Active Substance: VIGABATRIN
     Indication: INFANTILE SPASMS
     Dosage: 250 MG, 2X/DAY
     Route: 048
     Dates: start: 201809, end: 201809
  3. VIGADRONE [Suspect]
     Active Substance: VIGABATRIN
     Dosage: 750 MG, 2X/DAY
     Route: 048
     Dates: start: 201809, end: 20180923
  4. ACTHAR [Concomitant]
     Active Substance: CORTICOTROPIN
  5. PYRIDOXINE [Concomitant]
     Active Substance: PYRIDOXINE
     Dosage: 25 MG
  6. AMLODIPINE [Concomitant]
     Active Substance: AMLODIPINE BESYLATE
  7. RIVASTIGMINE. [Concomitant]
     Active Substance: RIVASTIGMINE
  8. VITAMIN B6 [Concomitant]
     Active Substance: PYRIDOXINE HYDROCHLORIDE

REACTIONS (4)
  - Product dose omission [Not Recovered/Not Resolved]
  - General physical condition abnormal [Not Recovered/Not Resolved]
  - Strabismus [Not Recovered/Not Resolved]
  - Insomnia [Not Recovered/Not Resolved]

NARRATIVE: CASE EVENT DATE: 201809
